FAERS Safety Report 22185135 (Version 1)
Quarter: 2023Q2

REPORT INFORMATION
  Report Type: Spontaneous
  Country: JP (occurrence: None)
  Receive Date: 20230407
  Receipt Date: 20230407
  Transmission Date: 20230722
  Serious: Yes (Hospitalization, Other)
  Sender: FDA-Public Use
  Company Number: JP-Unichem Pharmaceuticals (USA) Inc-UCM202303-000343

PATIENT
  Sex: Female

DRUGS (4)
  1. CELECOXIB [Suspect]
     Active Substance: CELECOXIB
     Indication: Musculoskeletal pain
  2. CELECOXIB [Suspect]
     Active Substance: CELECOXIB
     Indication: Pain in extremity
  3. ESCITALOPRAM [Suspect]
     Active Substance: ESCITALOPRAM OXALATE
     Indication: Depression
  4. TRAZODONE [Suspect]
     Active Substance: TRAZODONE HYDROCHLORIDE
     Indication: Depression

REACTIONS (2)
  - Drug interaction [Unknown]
  - Feeling jittery [Recovered/Resolved]
